FAERS Safety Report 5818598-5 (Version None)
Quarter: 2008Q3

REPORT INFORMATION
  Report Type: 
  Country: None (occurrence: None)
  Receive Date: 20080722
  Receipt Date: 20080710
  Transmission Date: 20090109
  Serious: Yes (Other)
  Sender: FDA-Public Use
  Company Number: IE-ELI_LILLY_AND_COMPANY-IE200807003649

PATIENT
  Sex: Female

DRUGS (6)
  1. BYETTA [Suspect]
     Indication: TYPE 2 DIABETES MELLITUS
     Dosage: 10 UG, DAILY (1/D)
     Route: 058
     Dates: start: 20080528, end: 20080618
  2. GLUCOPHAGE [Concomitant]
     Dosage: UNK, UNKNOWN
     Route: 065
  3. SERETIDE [Concomitant]
     Dosage: 25/250 UG/DOSE PRESSURISED, UNKNOWN
     Route: 055
  4. VENTOLIN [Concomitant]
     Dosage: 100 UG PRESSURISED, UNKNOWN
     Route: 055
  5. UNIPHYL [Concomitant]
     Dosage: UNK, UNKNOWN
     Route: 065
  6. SINGULAIR [Concomitant]
     Dosage: UNK, UNKNOWN
     Route: 065

REACTIONS (2)
  - FACE OEDEMA [None]
  - RASH [None]
